FAERS Safety Report 4851703-6 (Version None)
Quarter: 2005Q4

REPORT INFORMATION
  Report Type: 
  Country: None (occurrence: None)
  Receive Date: 20051209
  Receipt Date: 20051209
  Transmission Date: 20060501
  Serious: Yes (Death)
  Sender: FDA-Public Use
  Company Number: None

PATIENT
  Age: 44 Year
  Sex: Male

DRUGS (2)
  1. DOCETAXEL [Suspect]
     Indication: SPINDLE CELL SARCOMA
     Dosage: 150 MILLIGRAMS Q21DAYS IV DRIP
     Route: 041
     Dates: start: 20050726, end: 20050726
  2. REVLIMID [Suspect]
     Dosage: 5 MILLIGRAMS  QD FOR 14 DAYS PO
     Route: 048
     Dates: start: 20050726, end: 20050729

REACTIONS (2)
  - CANCER PAIN [None]
  - MALIGNANT NEOPLASM PROGRESSION [None]
